FAERS Safety Report 14063462 (Version 1)
Quarter: 2017Q4

REPORT INFORMATION
  Report Type: Report from Study
  Country: US (occurrence: BR)
  Receive Date: 20171009
  Receipt Date: 20171009
  Transmission Date: 20180321
  Serious: Yes (Life-Threatening, Other)
  Sender: FDA-Public Use
  Company Number: US-SUNOVION-2017SUN004343

PATIENT
  Sex: Male
  Weight: 82 kg

DRUGS (7)
  1. INDACATEROL AND GLYCOPYRROLATE [Suspect]
     Active Substance: GLYCOPYRROLATE\INDACATEROL MALEATE
     Indication: ASTHMA
     Dosage: 1 DF (GLYCOPYRRONIUM BROMIDE 50 UG/ INDACATEROL 110 UG), QD
     Route: 055
  2. AEROLIN [Concomitant]
     Active Substance: ALBUTEROL
     Dosage: UNK
  3. FLUIMUCIL [Concomitant]
     Active Substance: ACETYLCYSTEINE
     Dosage: UNK
  4. ALENIA [Concomitant]
     Active Substance: BUDESONIDE\FORMOTEROL FUMARATE
     Dosage: UNK
  5. SPIRIVA [Concomitant]
     Active Substance: TIOTROPIUM BROMIDE MONOHYDRATE
  6. PREDSIM [Concomitant]
     Active Substance: PREDNISOLONE
     Dosage: UNK
  7. TAMIRAM [Concomitant]
     Active Substance: LEVOFLOXACIN
     Dosage: UNK

REACTIONS (7)
  - Apparent death [Unknown]
  - Lung disorder [Unknown]
  - Myocardial infarction [Unknown]
  - Fatigue [Unknown]
  - Product use in unapproved indication [Unknown]
  - Nervousness [Unknown]
  - Dyspnoea [Unknown]
